FAERS Safety Report 20699648 (Version 1)
Quarter: 2022Q2

REPORT INFORMATION
  Report Type: Spontaneous
  Country: US (occurrence: None)
  Receive Date: 20220411
  Receipt Date: 20220411
  Transmission Date: 20220720
  Serious: Yes (Hospitalization)
  Sender: FDA-Public Use
  Company Number: None

PATIENT
  Sex: Female

DRUGS (10)
  1. ESBRIET [Suspect]
     Active Substance: PIRFENIDONE
     Indication: Idiopathic pulmonary fibrosis
     Dosage: FREQUENCY : 3 TIMES A DAY;?
     Route: 048
     Dates: start: 20200827
  2. BENZONATATE CAP 100MG [Concomitant]
  3. DOXYCYC MONO CAP 100MG [Concomitant]
  4. ESBRIET [Concomitant]
     Active Substance: PIRFENIDONE
  5. ESTRADIOL TAB 1MG [Concomitant]
  6. LEVOTHYROXIN TAB 75MCG [Concomitant]
  7. LOSARTAN POT TAB 50MG [Concomitant]
  8. MULTIVITAMIN TAB ADULT [Concomitant]
  9. OMEPRAZOLE [Concomitant]
     Active Substance: OMEPRAZOLE
  10. VITAMIN CTAB 500MG [Concomitant]

REACTIONS (3)
  - Decreased appetite [None]
  - Pneumonia [None]
  - Hypotension [None]
